FAERS Safety Report 4410873-4 (Version None)
Quarter: 2004Q3

REPORT INFORMATION
  Report Type: 
  Country: None (occurrence: None)
  Receive Date: 20040726
  Receipt Date: 20040726
  Transmission Date: 20050211
  Serious: Yes (Other)
  Sender: FDA-Public Use
  Company Number: None

PATIENT
  Sex: Female
  Weight: 64.8644 kg

DRUGS (5)
  1. REV-EYES [Suspect]
     Indication: MYDRIASIS
     Dosage: ONE DROP EACH EYE X 1
     Route: 047
     Dates: start: 20040601
  2. VITAMIN B-12 [Concomitant]
  3. VITAMIN D [Concomitant]
  4. CALCIUM SUPPLEMENT [Concomitant]
  5. ESTRATEST [Concomitant]

REACTIONS (3)
  - HYPOAESTHESIA ORAL [None]
  - SWELLING FACE [None]
  - SWOLLEN TONGUE [None]
